FAERS Safety Report 5952237-8 (Version None)
Quarter: 2008Q4

REPORT INFORMATION
  Report Type: 
  Country: None (occurrence: None)
  Receive Date: 20081113
  Receipt Date: 20081110
  Transmission Date: 20090506
  Serious: Yes (Death)
  Sender: FDA-Public Use
  Company Number: DE-WYE-G02543008

PATIENT
  Sex: Female
  Weight: 53 kg

DRUGS (4)
  1. TYGACIL [Suspect]
     Indication: PERITONITIS
     Route: 042
     Dates: start: 20080406, end: 20080415
  2. SIMVASTATIN [Concomitant]
  3. ANTI-PHOSPHAT [Concomitant]
     Dosage: UNKNOWN
  4. NEXIUM [Concomitant]
     Dosage: UNKNOWN

REACTIONS (3)
  - ARTERIOSCLEROSIS [None]
  - MULTI-ORGAN FAILURE [None]
  - MYOCARDIAL INFARCTION [None]
